FAERS Safety Report 25874440 (Version 1)
Quarter: 2025Q4

REPORT INFORMATION
  Report Type: Spontaneous
  Country: US (occurrence: None)
  Receive Date: 20251002
  Receipt Date: 20251002
  Transmission Date: 20260118
  Serious: Yes (Life-Threatening)
  Sender: FDA-CTU
  Company Number: None

PATIENT
  Age: 69 Year
  Sex: Female
  Weight: 80.1 kg

DRUGS (7)
  1. REPATHA [Suspect]
     Active Substance: EVOLOCUMAB
     Indication: Blood cholesterol increased
     Dosage: FREQUENCY : EVERY  2 WEEKS?OTHER ROUTE : INJECTION TO STOMACH, THIGH OR ARM?
     Route: 050
     Dates: start: 20250917, end: 20250922
  2. CPAP CETIRIZINE [Concomitant]
  3. OMEPRAZOLE [Concomitant]
     Active Substance: OMEPRAZOLE
  4. CORTISONE [Concomitant]
     Active Substance: CORTISONE
  5. Multivitamin (Centrum for women over 50) [Concomitant]
  6. ARED [Concomitant]
  7. VITAMIN D3 [Concomitant]
     Active Substance: CHOLECALCIFEROL

REACTIONS (2)
  - Bronchitis [None]
  - Near death experience [None]

NARRATIVE: CASE EVENT DATE: 20250922
